FAERS Safety Report 24458489 (Version 1)
Quarter: 2024Q4

REPORT INFORMATION
  Report Type: Spontaneous
  Country: US (occurrence: US)
  Receive Date: 20241018
  Receipt Date: 20241018
  Transmission Date: 20250115
  Serious: Yes (Other)
  Sender: ENDO
  Company Number: US-ENDO USA, INC.-2024-003522

PATIENT
  Sex: Male

DRUGS (1)
  1. XIAFLEX [Suspect]
     Active Substance: COLLAGENASE CLOSTRIDIUM HISTOLYTICUM
     Indication: Dupuytren^s contracture
     Dosage: UNK UNKNOWN, UNKNOWN (CYCLE ONE, INJECTION ONE)
     Route: 051
     Dates: start: 202109, end: 202109

REACTIONS (6)
  - Prostatectomy [Recovered/Resolved]
  - Surgery [Recovered/Resolved]
  - Dupuytren^s contracture [Not Recovered/Not Resolved]
  - Disease recurrence [Not Recovered/Not Resolved]
  - Procedural pain [Recovered/Resolved]
  - Therapeutic product effect incomplete [Not Recovered/Not Resolved]

NARRATIVE: CASE EVENT DATE: 20210901
